FAERS Safety Report 24458336 (Version 1)
Quarter: 2024Q4

REPORT INFORMATION
  Report Type: Report from Study
  Country: US (occurrence: US)
  Receive Date: 20241018
  Receipt Date: 20241018
  Transmission Date: 20250114
  Serious: No
  Sender: ROCHE
  Company Number: US-ROCHE-3525068

PATIENT
  Age: 37 Year
  Sex: Male

DRUGS (7)
  1. RITUXAN [Suspect]
     Active Substance: RITUXIMAB
     Indication: Nephritic syndrome
     Route: 041
     Dates: start: 20230626
  2. RITUXAN [Suspect]
     Active Substance: RITUXIMAB
     Indication: Glomerulonephritis membranoproliferative
  3. RITUXAN [Suspect]
     Active Substance: RITUXIMAB
     Indication: Secondary hypertension
  4. RITUXAN [Suspect]
     Active Substance: RITUXIMAB
     Indication: Renal disorder
  5. LOSARTAN [Concomitant]
     Active Substance: LOSARTAN
  6. ALLOPURINOL [Concomitant]
     Active Substance: ALLOPURINOL
  7. LEVOTHYROXINE [Concomitant]
     Active Substance: LEVOTHYROXINE

REACTIONS (2)
  - Off label use [Unknown]
  - No adverse event [Unknown]
